FAERS Safety Report 5744848-X (Version None)
Quarter: 2008Q2

REPORT INFORMATION
  Report Type: 
  Country: None (occurrence: None)
  Receive Date: 20080516
  Receipt Date: 20080502
  Transmission Date: 20081010
  Serious: Yes (Hospitalization)
  Sender: FDA-Public Use
  Company Number: 2008001063

PATIENT
  Sex: Female

DRUGS (9)
  1. ERLOTINIB (ERLOTINIB HCL)(TABLET) (ERLOTINIB HCL) [Suspect]
     Indication: PANCREATIC CARCINOMA
     Dosage: (150 MG, QD), ORAL
     Route: 048
     Dates: start: 20080324, end: 20080429
  2. EVEROLIMUS (EVEROLIMUS) [Suspect]
     Indication: PANCREATIC CARCINOMA
     Dosage: (30 MG,QW), ORAL
     Route: 048
     Dates: start: 20080324, end: 20080428
  3. AUGMENTIN '125' [Concomitant]
  4. CELEXA [Concomitant]
  5. CENTRUM (CENTRUM) [Concomitant]
  6. ESTROGEN PATCH (ESTROGEN NOS) [Concomitant]
  7. LORTAB [Concomitant]
  8. NEXIUM [Concomitant]
  9. ZOFRAN [Concomitant]

REACTIONS (4)
  - DEHYDRATION [None]
  - DIARRHOEA [None]
  - HYPOKALAEMIA [None]
  - VOMITING [None]
